FAERS Safety Report 19256212 (Version 1)
Quarter: 2021Q2

REPORT INFORMATION
  Report Type: Spontaneous
  Country: IT (occurrence: IT)
  Receive Date: 20210514
  Receipt Date: 20210514
  Transmission Date: 20210717
  Serious: Yes (Hospitalization, Other)
  Sender: FDA-Public Use
  Company Number: IT-BECTON DICKINSON-IT-BD-21-000121

PATIENT
  Age: 65 Year
  Sex: Female

DRUGS (1)
  1. 2% CHG/70%IPA [Suspect]
     Active Substance: CHLORHEXIDINE GLUCONATE\ISOPROPYL ALCOHOL
     Indication: INFECTION PROPHYLAXIS
     Dosage: UNKNOWN
     Route: 061

REACTIONS (4)
  - Burns second degree [Recovered/Resolved]
  - Burns third degree [Recovered/Resolved]
  - Accident [Unknown]
  - Legal problem [Unknown]
